FAERS Safety Report 6122669-6 (Version None)
Quarter: 2009Q1

REPORT INFORMATION
  Report Type: 
  Country: None (occurrence: None)
  Receive Date: 20090318
  Receipt Date: 20090311
  Transmission Date: 20090719
  Serious: Yes (Other)
  Sender: FDA-Public Use
  Company Number: SK-NOVOPROD-285167

PATIENT
  Age: 46 Year
  Sex: Female
  Weight: 107 kg

DRUGS (3)
  1. NOVORAPID FLEXPEN [Suspect]
     Indication: DIABETES MELLITUS
     Dosage: 32 IU, QD
     Route: 058
     Dates: start: 20090129, end: 20090203
  2. LEVEMIR [Concomitant]
     Indication: DIABETES MELLITUS
     Dosage: 32 IU, QD
     Route: 058
     Dates: start: 20090129
  3. SIOFOR [Concomitant]
     Dosage: 2000 MG, QD
     Route: 048
     Dates: start: 20070101

REACTIONS (5)
  - DIABETES MELLITUS [None]
  - HYPERGLYCAEMIA [None]
  - OEDEMA PERIPHERAL [None]
  - PAIN [None]
  - POLYURIA [None]
